FAERS Safety Report 14392406 (Version 2)
Quarter: 2018Q1

REPORT INFORMATION
  Report Type: Spontaneous
  Country: US (occurrence: US)
  Receive Date: 20180116
  Receipt Date: 20180205
  Transmission Date: 20180509
  Serious: Yes (Hospitalization, Other)
  Sender: FDA-Public Use
  Company Number: US-PFIZER INC-2018015995

PATIENT
  Age: 82 Year
  Sex: Female
  Weight: 54 kg

DRUGS (10)
  1. BYSTOLIC [Concomitant]
     Active Substance: NEBIVOLOL HYDROCHLORIDE
     Indication: CARDIAC DISORDER
     Dosage: 5 MG, 1X/DAY
     Route: 048
  2. PANTOPRAZOLE [Concomitant]
     Active Substance: PANTOPRAZOLE
     Indication: GASTRIC DISORDER
     Dosage: 40 MG, DAILY
     Route: 048
  3. THEOPHYLLINE [Concomitant]
     Active Substance: THEOPHYLLINE ANHYDROUS
     Indication: LUNG DISORDER
     Dosage: 300MG, HALF TABLET EVEYR 12 HOURS
     Route: 048
  4. REVATIO [Suspect]
     Active Substance: SILDENAFIL CITRATE
     Indication: OXYGEN SATURATION DECREASED
     Dosage: 20 MG, 2X/DAY
     Route: 048
  5. AMIODARONE [Concomitant]
     Active Substance: AMIODARONE
     Indication: CARDIAC DISORDER
     Dosage: 200 MG, 1X/DAY
     Route: 048
  6. REVATIO [Suspect]
     Active Substance: SILDENAFIL CITRATE
     Indication: ATRIAL FIBRILLATION
  7. BUMETANIDE. [Concomitant]
     Active Substance: BUMETANIDE
     Indication: FLUID RETENTION
     Dosage: 0.5 MG, 1X/DAY
     Route: 048
  8. PRESERVISION [Concomitant]
     Active Substance: MINERALS\VITAMINS
     Indication: EYE DISORDER
     Dosage: UNK UNK, 2X/DAY
  9. FERROUS SULFATE. [Concomitant]
     Active Substance: FERROUS SULFATE
     Indication: ANAEMIA
     Dosage: 45 MG, 1X/DAY
  10. ADVAIR HFA [Concomitant]
     Active Substance: FLUTICASONE PROPIONATE\SALMETEROL XINAFOATE
     Indication: RESPIRATION ABNORMAL
     Dosage: TWO PUFFS TWICE DAILY

REACTIONS (7)
  - Arrhythmia [Unknown]
  - Cardiogenic shock [Unknown]
  - Malaise [Unknown]
  - Dyspepsia [Unknown]
  - Gastric haemorrhage [Unknown]
  - Cardiac failure congestive [Not Recovered/Not Resolved]
  - Product use in unapproved indication [Unknown]
